FAERS Safety Report 8401803 (Version 5)
Quarter: 2013Q4

REPORT INFORMATION
  Report Type: Spontaneous
  Country: US (occurrence: US)
  Receive Date: 20120213
  Receipt Date: 20131127
  Transmission Date: 20140711
  Serious: No
  Sender: FDA-Public Use
  Company Number: US-BIOGENIDEC-2012BI004492

PATIENT
  Age: 57 Year
  Sex: Female

DRUGS (13)
  1. CO Q-10 [Concomitant]
  2. TYSABRI [Suspect]
     Indication: MULTIPLE SCLEROSIS
     Route: 042
     Dates: start: 20101117, end: 20120119
  3. PRILOSEC [Concomitant]
  4. FEXOFENADINE [Concomitant]
  5. PREMARIN [Concomitant]
     Route: 048
  6. SINGULAIR [Concomitant]
     Route: 048
  7. QVAR [Concomitant]
     Route: 055
  8. OMEGA 3 [Concomitant]
  9. POTASSIUM BICARBONATE [Concomitant]
  10. SAW PALMETTO [Concomitant]
  11. VITAMIN B-12 [Concomitant]
  12. VITAMIN D3 [Concomitant]
  13. DHEA [Concomitant]

REACTIONS (15)
  - Muscular weakness [Not Recovered/Not Resolved]
  - Gait disturbance [Not Recovered/Not Resolved]
  - Fatigue [Recovered/Resolved]
  - Asthenia [Not Recovered/Not Resolved]
  - Drug ineffective [Recovered/Resolved]
  - Hypoaesthesia [Not Recovered/Not Resolved]
  - Loss of control of legs [Recovered/Resolved]
  - Limb asymmetry [Unknown]
  - Musculoskeletal stiffness [Unknown]
  - Pain [Unknown]
  - Rheumatoid arthritis [Unknown]
  - Osteoarthritis [Unknown]
  - General physical health deterioration [Recovered/Resolved]
  - Drug specific antibody present [Recovered/Resolved]
  - Neutralising antibodies positive [Not Recovered/Not Resolved]
